FAERS Safety Report 9316323 (Version 1)
Quarter: 2013Q2

REPORT INFORMATION
  Report Type: Spontaneous
  Country: US (occurrence: None)
  Receive Date: 20130528
  Receipt Date: 20130528
  Transmission Date: 20140414
  Serious: Yes (Other)
  Sender: FDA-Public Use
  Company Number: None

PATIENT
  Sex: Female
  Weight: 86.18 kg

DRUGS (5)
  1. XOPENEX HFA [Suspect]
     Dosage: 2 PUFFS
     Route: 055
  2. VENTOLIN HFA [Suspect]
     Dosage: 2 PUFFS
     Route: 055
  3. ALBUTEROL SULFATE [Concomitant]
  4. XOPENEX [Concomitant]
  5. DALENA [Concomitant]

REACTIONS (1)
  - Dizziness [None]
